FAERS Safety Report 4373228-7 (Version None)
Quarter: 2004Q2

REPORT INFORMATION
  Report Type: 
  Country: None (occurrence: None)
  Receive Date: 20040608
  Receipt Date: 20040601
  Transmission Date: 20050107
  Serious: Yes (Disabling)
  Sender: FDA-Public Use
  Company Number: US-GLAXOSMITHKLINE-A0512766A

PATIENT
  Age: 41 Year
  Sex: Female

DRUGS (1)
  1. PAXIL [Suspect]
     Route: 048
     Dates: start: 20010301

REACTIONS (5)
  - DEFORMITY [None]
  - DRUG WITHDRAWAL SYNDROME [None]
  - GUN SHOT WOUND [None]
  - INTENTIONAL OVERDOSE [None]
  - SUICIDE ATTEMPT [None]
